FAERS Safety Report 7819989-3 (Version None)
Quarter: 2011Q4

REPORT INFORMATION
  Report Type: 
  Country: None (occurrence: None)
  Receive Date: 20111013
  Receipt Date: 20111003
  Transmission Date: 20120403
  Serious: Yes (Hospitalization)
  Sender: FDA-Public Use
  Company Number: 1000024555

PATIENT
  Age: 90 Year
  Sex: Male
  Weight: 56 kg

DRUGS (3)
  1. ESCITALOPRAM [Suspect]
     Dosage: 5 MG (5 MG, 1 IN 1 D), ORAL
     Route: 048
  2. ATROVENT [Concomitant]
  3. PULMICORT [Concomitant]

REACTIONS (3)
  - NEUTROPENIA [None]
  - ASTHENIA [None]
  - DIZZINESS [None]
